FAERS Safety Report 4424592-1 (Version None)
Quarter: 2004Q3

REPORT INFORMATION
  Report Type: 
  Country: None (occurrence: None)
  Receive Date: 20040809
  Receipt Date: 20040805
  Transmission Date: 20050211
  Serious: Yes (Other)
  Sender: FDA-Public Use
  Company Number: 028-20785-04070290

PATIENT
  Age: 42 Year
  Sex: Female

DRUGS (1)
  1. THALOMID [Suspect]
     Indication: MULTIPLE MYELOMA
     Dosage: 200 MG, QHS, ORAL
     Route: 048

REACTIONS (6)
  - BLOOD BILIRUBIN INCREASED [None]
  - BLOOD HUMAN CHORIONIC GONADOTROPIN INCREASED [None]
  - BLOOD IMMUNOGLOBULIN A DECREASED [None]
  - BLOOD IMMUNOGLOBULIN G DECREASED [None]
  - BLOOD IMMUNOGLOBULIN M INCREASED [None]
  - BLOOD LACTATE DEHYDROGENASE INCREASED [None]
